FAERS Safety Report 9722403 (Version 2)
Quarter: 2013Q4

REPORT INFORMATION
  Report Type: Report from Study
  Country: JP (occurrence: JP)
  Receive Date: 20131202
  Receipt Date: 20131202
  Transmission Date: 20140711
  Serious: Yes (Other)
  Sender: FDA-Public Use
  Company Number: PHHY2012JP015675

PATIENT
  Age: 33 Year
  Sex: Female

DRUGS (22)
  1. LEPONEX / CLOZARIL [Suspect]
     Indication: SCHIZOPHRENIA, PARANOID TYPE
     Dosage: 12.5 MG, DAILY
     Route: 048
     Dates: start: 20120105, end: 20120105
  2. LEPONEX / CLOZARIL [Suspect]
     Dosage: 25 MG, DAILY
     Route: 048
     Dates: start: 20120106, end: 20120108
  3. LEPONEX / CLOZARIL [Suspect]
     Dosage: 50 MG, DAILY
     Route: 048
     Dates: start: 20120109, end: 20120111
  4. LEPONEX / CLOZARIL [Suspect]
     Dosage: 75 MG, DAILY
     Route: 048
     Dates: start: 20120112, end: 20120114
  5. LEPONEX / CLOZARIL [Suspect]
     Dosage: 100 MG, DAILY
     Route: 048
     Dates: start: 20120115, end: 20120116
  6. LEPONEX / CLOZARIL [Suspect]
     Dosage: 125 MG, DAILY
     Route: 048
     Dates: start: 20120117, end: 20120118
  7. LEPONEX / CLOZARIL [Suspect]
     Dosage: 150 MG, DAILY
     Route: 048
     Dates: start: 20120119, end: 20120121
  8. LEPONEX / CLOZARIL [Suspect]
     Dosage: 175 MG, DAILY
     Route: 048
     Dates: start: 20120122, end: 20120123
  9. LEPONEX / CLOZARIL [Suspect]
     Dosage: 12.5 MG, DAILY
     Route: 048
     Dates: start: 20120215, end: 20120215
  10. LEPONEX / CLOZARIL [Suspect]
     Dosage: 25 MG, DAILY
     Route: 048
     Dates: start: 20120216, end: 20120218
  11. LEPONEX / CLOZARIL [Suspect]
     Dosage: 50 MG, DAILY
     Route: 048
     Dates: start: 20120219, end: 20120221
  12. ARIPIPRAZOLE [Concomitant]
     Dosage: 30 MG, UNK
     Route: 048
     Dates: start: 20120105
  13. ARIPIPRAZOLE [Concomitant]
     Dosage: 30 MG, UNK
     Route: 048
  14. OLANZAPINE [Concomitant]
     Dosage: 10 MG, UNK
     Route: 048
     Dates: start: 20120105
  15. OLANZAPINE [Concomitant]
     Dosage: 10 MG, UNK
     Route: 048
  16. FLUNITRAZEPAM [Concomitant]
     Indication: SCHIZOPHRENIA, PARANOID TYPE
     Dosage: 2 MG, UNK
     Route: 048
     Dates: start: 20120105
  17. MAGMITT [Concomitant]
     Indication: SCHIZOPHRENIA, PARANOID TYPE
     Dosage: 1980 MG, UNK
     Route: 048
     Dates: start: 20120105
  18. MAGMITT [Concomitant]
     Dosage: 1650 MG, UNK
     Route: 048
  19. WYPAX [Concomitant]
     Indication: SCHIZOPHRENIA, PARANOID TYPE
     Dosage: 0.75 MG, UNK
     Route: 048
     Dates: start: 20120105
  20. PYRETHIA//PROMETHAZINE HYDROCHLORIDE [Concomitant]
     Indication: SCHIZOPHRENIA, PARANOID TYPE
     Dosage: 75 MG, UNK
     Route: 048
     Dates: start: 20120105
  21. SENNOSIDE [Concomitant]
     Indication: SCHIZOPHRENIA, PARANOID TYPE
     Dosage: 24 MG, UNK
     Route: 048
     Dates: start: 20120105
  22. SENNOSIDE [Concomitant]
     Dosage: 12 MG, UNK
     Route: 048
     Dates: end: 20120307

REACTIONS (2)
  - Pericardial effusion [Recovered/Resolved]
  - Pyrexia [Recovering/Resolving]
